FAERS Safety Report 4812002-1 (Version None)
Quarter: 2005Q4

REPORT INFORMATION
  Report Type: 
  Country: None (occurrence: None)
  Receive Date: 20051027
  Receipt Date: 20051027
  Transmission Date: 20060501
  Serious: Yes (Hospitalization, Disabling, Other)
  Sender: FDA-Public Use
  Company Number: None

PATIENT
  Sex: Male
  Weight: 79.3795 kg

DRUGS (10)
  1. ZOLOFT [Suspect]
     Indication: ADJUSTMENT DISORDER
     Dosage: 100MG    ONCE A DAY  PO
     Route: 048
     Dates: start: 20050131, end: 20050225
  2. ZOLOFT [Suspect]
     Indication: ANXIETY
     Dosage: 100MG    ONCE A DAY  PO
     Route: 048
     Dates: start: 20050131, end: 20050225
  3. CYMBALTA [Suspect]
     Indication: ADJUSTMENT DISORDER
     Dosage: 60MG   ONCE A DAY  PO
     Route: 048
     Dates: start: 20050225, end: 20051023
  4. CYMBALTA [Suspect]
     Indication: ANXIETY
     Dosage: 60MG   ONCE A DAY  PO
     Route: 048
     Dates: start: 20050225, end: 20051023
  5. PROSCAR [Concomitant]
  6. HYTRIN [Concomitant]
  7. ALDACTONE [Concomitant]
  8. AMBIEN [Concomitant]
  9. XANAX XR [Concomitant]
  10. SEROQUEL [Concomitant]

REACTIONS (21)
  - AKATHISIA [None]
  - ATTENTION DEFICIT/HYPERACTIVITY DISORDER [None]
  - CHEST PAIN [None]
  - DEPRESSION [None]
  - DRUG PRESCRIBING ERROR [None]
  - DRUG WITHDRAWAL SYNDROME [None]
  - EAR DISORDER [None]
  - FEELING ABNORMAL [None]
  - HALLUCINATION [None]
  - IMPAIRED WORK ABILITY [None]
  - INCORRECT DOSE ADMINISTERED [None]
  - MUSCLE SPASMS [None]
  - NERVOUS SYSTEM DISORDER [None]
  - NIGHTMARE [None]
  - OBSESSIVE-COMPULSIVE PERSONALITY DISORDER [None]
  - PANIC ATTACK [None]
  - PIRIFORMIS SYNDROME [None]
  - POST-TRAUMATIC STRESS DISORDER [None]
  - SCIATICA [None]
  - TREMOR [None]
  - VISUAL DISTURBANCE [None]
